FAERS Safety Report 12774119 (Version 3)
Quarter: 2017Q1

REPORT INFORMATION
  Report Type: Spontaneous
  Country: US (occurrence: US)
  Receive Date: 20160923
  Receipt Date: 20170123
  Transmission Date: 20170428
  Serious: Yes (Hospitalization)
  Sender: FDA-Public Use
  Company Number: US-UNITED THERAPEUTICS-UNT-2016-014816

PATIENT
  Age: 74 Year
  Sex: Male
  Weight: 73.97 kg

DRUGS (2)
  1. REMODULIN [Suspect]
     Active Substance: TREPROSTINIL
     Indication: PULMONARY ARTERIAL HYPERTENSION
     Dosage: 0.003 ?G/KG, CONTINUING
     Route: 041
     Dates: start: 20160817
  2. REMODULIN [Suspect]
     Active Substance: TREPROSTINIL
     Dosage: 0.00325 ?G/KG, CONTINUING
     Route: 041

REACTIONS (2)
  - Gastric haemorrhage [Unknown]
  - Dyspnoea [Unknown]

NARRATIVE: CASE EVENT DATE: 20160917
